FAERS Safety Report 21105888 (Version 5)
Quarter: 2022Q4

REPORT INFORMATION
  Report Type: Report from Study
  Country: US (occurrence: US)
  Receive Date: 20220720
  Receipt Date: 20221208
  Transmission Date: 20230113
  Serious: Yes (Hospitalization, Other)
  Sender: FDA-Public Use
  Company Number: US-NOVARTISTESTPH-NVSC2022US164308

PATIENT
  Sex: Male

DRUGS (3)
  1. ENTRESTO [Suspect]
     Active Substance: SACUBITRIL\VALSARTAN
     Indication: Product used for unknown indication
     Dosage: UNK UNK, BID, 97/103 MG
     Route: 065
     Dates: start: 202207
  2. CARVEDILOL [Suspect]
     Active Substance: CARVEDILOL
     Indication: Product used for unknown indication
     Dosage: UNK
     Route: 065
  3. METOPROLOL [Suspect]
     Active Substance: METOPROLOL
     Indication: Product used for unknown indication
     Dosage: UNK
     Route: 065
     Dates: start: 2022, end: 202208

REACTIONS (7)
  - Lung disorder [Unknown]
  - Cough [Recovering/Resolving]
  - Increased appetite [Recovering/Resolving]
  - Urine output decreased [Unknown]
  - Weight fluctuation [Recovering/Resolving]
  - Productive cough [Unknown]
  - Product dose omission issue [Unknown]
